FAERS Safety Report 5155708-X (Version None)
Quarter: 2006Q4

REPORT INFORMATION
  Report Type: 
  Country: None (occurrence: None)
  Receive Date: 20061114
  Receipt Date: 20061030
  Transmission Date: 20070319
  Serious: Yes (Hospitalization, Disabling)
  Sender: FDA-Public Use
  Company Number: 2006011169

PATIENT
  Age: 57 Year
  Sex: Male
  Weight: 94.8 kg

DRUGS (7)
  1. SUTENT [Suspect]
     Indication: GASTROINTESTINAL STROMAL TUMOUR
     Dosage: 50 MG (50 MG, 1 IN 1 D), ORAL
     Route: 048
     Dates: start: 20060106, end: 20060222
  2. ATENOLOL [Concomitant]
  3. NORVASC [Concomitant]
  4. LIPITOR [Concomitant]
  5. ACETYLSALICYLIC ACID SRT [Concomitant]
  6. NITROGLYCERIN [Concomitant]
  7. HYTRIN [Concomitant]

REACTIONS (12)
  - CELLULITIS [None]
  - DYSSTASIA [None]
  - GAIT DISTURBANCE [None]
  - GUILLAIN-BARRE SYNDROME [None]
  - MALAISE [None]
  - MUSCULOSKELETAL DISCOMFORT [None]
  - NEUROPATHY [None]
  - PAIN IN EXTREMITY [None]
  - PALMAR-PLANTAR ERYTHRODYSAESTHESIA SYNDROME [None]
  - PANCYTOPENIA [None]
  - PYREXIA [None]
  - WHEELCHAIR USER [None]
